FAERS Safety Report 17249629 (Version 2)
Quarter: 2020Q1

REPORT INFORMATION
  Report Type: Report from Study
  Country: None (occurrence: US)
  Receive Date: 20200108
  Receipt Date: 20200225
  Transmission Date: 20200409
  Serious: Yes (Hospitalization, Other)
  Sender: FDA-Public Use
  Company Number: US-ABBVIE-20K-163-3223409-00

PATIENT
  Sex: Male
  Weight: 118.04 kg

DRUGS (1)
  1. HUMIRA [Suspect]
     Active Substance: ADALIMUMAB
     Indication: RHEUMATOID ARTHRITIS
     Dosage: CITRATE FREE
     Route: 058
     Dates: start: 20191227

REACTIONS (5)
  - Asthma [Unknown]
  - Bronchitis [Recovering/Resolving]
  - Head injury [Unknown]
  - Loss of consciousness [Unknown]
  - Concussion [Recovering/Resolving]
